FAERS Safety Report 7993444-2 (Version None)
Quarter: 2011Q4

REPORT INFORMATION
  Report Type: 
  Country: None (occurrence: None)
  Receive Date: 20111219
  Receipt Date: 20110513
  Transmission Date: 20120403
  Serious: No
  Sender: FDA-Public Use
  Company Number: US-ASTRAZENECA-2011SE28996

PATIENT
  Sex: Male

DRUGS (1)
  1. CRESTOR [Suspect]
     Route: 048

REACTIONS (2)
  - DRUG INEFFECTIVE FOR UNAPPROVED INDICATION [None]
  - CAROTID ARTERIOSCLEROSIS [None]
